FAERS Safety Report 15954867 (Version 1)
Quarter: 2019Q1

REPORT INFORMATION
  Report Type: Spontaneous
  Country: SE (occurrence: SE)
  Receive Date: 20190213
  Receipt Date: 20190213
  Transmission Date: 20190417
  Serious: Yes (Other)
  Sender: FDA-Public Use
  Company Number: SE-AUROBINDO-AUR-APL-2019-007323

PATIENT

DRUGS (2)
  1. YASMIN [Interacting]
     Active Substance: DROSPIRENONE\ETHINYL ESTRADIOL
     Indication: CONTRACEPTION
     Dosage: UNK
     Route: 065
     Dates: start: 201707
  2. LAMOTRIGINE TABLET [Suspect]
     Active Substance: LAMOTRIGINE
     Indication: BIPOLAR DISORDER
     Dosage: 300 MILLIGRAM, ONCE A DAY
     Route: 065
     Dates: start: 2015

REACTIONS (3)
  - Circumstance or information capable of leading to medication error [Unknown]
  - Drug interaction [Unknown]
  - Unwanted pregnancy [Unknown]
